FAERS Safety Report 8570723-1 (Version None)
Quarter: 2012Q3

REPORT INFORMATION
  Report Type: 
  Country: None (occurrence: None)
  Receive Date: 20120805
  Receipt Date: 20120525
  Transmission Date: 20120928
  Serious: No
  Sender: FDA-Public Use
  Company Number: US-009507513-2012SP024102

PATIENT

DRUGS (5)
  1. CLARITIN [Suspect]
     Indication: THROAT IRRITATION
  2. CLARITIN [Suspect]
     Indication: SINUS CONGESTION
  3. CLARITIN [Suspect]
     Indication: MEDICAL OBSERVATION
  4. CLARITIN [Suspect]
     Indication: SEASONAL ALLERGY
     Dosage: 5 MG, ONCE
     Route: 048
     Dates: start: 20120424
  5. CLARITIN [Suspect]
     Indication: LACRIMATION INCREASED

REACTIONS (2)
  - OROPHARYNGEAL PAIN [None]
  - THROAT IRRITATION [None]
